FAERS Safety Report 9723595 (Version 1)
Quarter: 2013Q4

REPORT INFORMATION
  Report Type: Spontaneous
  Country: MY (occurrence: MY)
  Receive Date: 20131202
  Receipt Date: 20131202
  Transmission Date: 20140711
  Serious: Yes (Hospitalization, Other)
  Sender: FDA-Public Use
  Company Number: MY-BAYER-2013-142531

PATIENT
  Age: 56 Year
  Sex: Female

DRUGS (5)
  1. CIPROFLOXACIN BETAIN [Suspect]
     Indication: PANTOEA AGGLOMERANS INFECTION
     Dosage: UNK
     Route: 042
     Dates: start: 2010, end: 2010
  2. CIPROFLOXACIN BETAIN [Suspect]
     Indication: ENDOCARDITIS
  3. CIPROFLOXACIN [Suspect]
     Indication: PANTOEA AGGLOMERANS INFECTION
     Dosage: UNK
     Route: 048
     Dates: start: 2010, end: 2010
  4. CIPROFLOXACIN [Suspect]
     Indication: ENDOCARDITIS
  5. SULPERAZONE [Concomitant]
     Indication: PANTOEA AGGLOMERANS INFECTION
     Dosage: 1 G, BID (PRIOR TO CIPROFLOXACIN)
     Route: 042
     Dates: start: 201009, end: 2010

REACTIONS (4)
  - Off label use [None]
  - Drug ineffective for unapproved indication [None]
  - Mitral valve incompetence [Not Recovered/Not Resolved]
  - Endocarditis [Not Recovered/Not Resolved]
